FAERS Safety Report 7651502-6 (Version None)
Quarter: 2011Q3

REPORT INFORMATION
  Report Type: 
  Country: None (occurrence: None)
  Receive Date: 20110802
  Receipt Date: 20110725
  Transmission Date: 20111222
  Serious: Yes (Hospitalization)
  Sender: FDA-Public Use
  Company Number: PHHO2009JP04930

PATIENT
  Sex: Female

DRUGS (23)
  1. MYCOPHENOLATE MOFETIL [Suspect]
     Dosage: 250 MG, UNK
     Route: 048
     Dates: start: 20110216
  2. NEORAL [Suspect]
     Dosage: 100 MG, UNK
     Dates: start: 20090325
  3. MEDROL [Suspect]
     Dosage: 4 MG, UNK
     Dates: start: 20090929
  4. MS REISHIPPU ASTRA [Concomitant]
     Dosage: UNK
     Dates: start: 20101102
  5. MEDROL [Suspect]
     Indication: RENAL TRANSPLANT
     Dosage: 8 MG, DAILY
     Route: 048
     Dates: start: 20090304
  6. TAGAMET [Concomitant]
     Indication: GASTRITIS PROPHYLAXIS
     Dosage: 200 MG, UNK
     Route: 048
     Dates: start: 20090224
  7. FERROUS CITRATE [Concomitant]
     Dosage: 50 MG, UNK
     Route: 048
     Dates: start: 20101214
  8. NEORAL [Suspect]
     Indication: RENAL TRANSPLANT
     Dosage: 50 MG, DAILY
     Route: 048
     Dates: start: 20090216
  9. SULFAMETHOXAZOLE [Concomitant]
     Indication: PNEUMOCYSTIS JIROVECI PNEUMONIA
     Dosage: 2 DF, UNK
     Route: 048
     Dates: start: 20090323
  10. STEROIDS NOS [Concomitant]
  11. ASPIRIN [Concomitant]
  12. MYCOPHENOLATE MOFETIL [Suspect]
     Dosage: 1500 MG, DAILY
     Route: 048
     Dates: start: 20090101, end: 20110215
  13. NEORAL [Suspect]
     Dosage: 125 MG, DAILY
     Dates: start: 20100203
  14. MEDROL [Suspect]
     Dosage: 16 MG, DAILY
     Route: 048
     Dates: start: 20090317
  15. SIMULECT [Concomitant]
     Indication: RENAL TRANSPLANT
     Dosage: 20 MG, ONCE/SINGLE
     Route: 042
     Dates: start: 20090218, end: 20090218
  16. NEORAL [Suspect]
     Dosage: 150 MG, DAILY
     Route: 048
     Dates: start: 20090223
  17. ALOSENN [Concomitant]
     Indication: CONSTIPATION
     Dosage: UNK
  18. NORVASC [Concomitant]
     Indication: HYPERTENSION
     Dosage: 1 DF, UNK
     Dates: start: 20090414
  19. ACETAMINOPHEN [Suspect]
     Dosage: UNK
     Route: 048
  20. SIMULECT [Concomitant]
     Dosage: 20 MG, ONCE/SINGLE
     Route: 042
     Dates: start: 20090222, end: 20090222
  21. ZOVIRAX [Concomitant]
     Indication: HERPES VIRUS INFECTION
     Dosage: 400 MG, UNK
     Route: 048
     Dates: start: 20090323
  22. TRICHLORMETHIAZIDE [Concomitant]
     Indication: POLYURIA
     Dosage: 2 MG, UNK
     Route: 048
     Dates: start: 20090414
  23. MYCOPHENOLATE MOFETIL [Suspect]
     Indication: RENAL TRANSPLANT
     Dosage: 2 G, DAILY
     Route: 048
     Dates: start: 20090218, end: 20090101

REACTIONS (2)
  - CYTOMEGALOVIRUS VIRAEMIA [None]
  - OSTEONECROSIS [None]
